FAERS Safety Report 5598152-3 (Version None)
Quarter: 2008Q1

REPORT INFORMATION
  Report Type: 
  Country: None (occurrence: None)
  Receive Date: 20080117
  Receipt Date: 20080117
  Transmission Date: 20080703
  Serious: Yes (Hospitalization)
  Sender: FDA-Public Use
  Company Number: None

PATIENT
  Sex: Female
  Weight: 68.6 kg

DRUGS (8)
  1. CYCLOPHOSPHAMIDE [Suspect]
     Dosage: 525 MG
  2. DOXORUBICIN HYDROCHLORIDE [Suspect]
     Dosage: 32 MG
  3. BACTRIM DS [Suspect]
     Dosage: 240 MG
  4. ALOXI [Concomitant]
  5. BENADRYL [Concomitant]
  6. TAGAMET [Concomitant]
  7. DECADRON [Concomitant]
  8. TYLENOL [Concomitant]

REACTIONS (4)
  - CEREBROVASCULAR ACCIDENT [None]
  - HEADACHE [None]
  - INFUSION RELATED REACTION [None]
  - MUSCULAR WEAKNESS [None]
